FAERS Safety Report 5747671-5 (Version None)
Quarter: 2008Q2

REPORT INFORMATION
  Report Type: 
  Country: None (occurrence: None)
  Receive Date: 20080523
  Receipt Date: 20080514
  Transmission Date: 20081010
  Serious: Yes (Disabling)
  Sender: FDA-Public Use
  Company Number: BE-GILEAD-2008-0016506

PATIENT
  Sex: Male
  Weight: 88 kg

DRUGS (10)
  1. VIREAD [Suspect]
     Indication: HIV INFECTION
     Route: 048
     Dates: start: 20071025, end: 20080425
  2. VIREAD [Suspect]
     Route: 048
     Dates: start: 20050118, end: 20070915
  3. FOSAMPRENAVIR [Suspect]
     Indication: HIV INFECTION
     Dates: start: 20071025
  4. LAMIVUDINE [Concomitant]
     Indication: HIV INFECTION
     Dates: start: 20050118
  5. ABACAVIR [Concomitant]
     Indication: HIV INFECTION
     Dates: start: 20080425
  6. ABACAVIR [Concomitant]
     Dates: start: 20070915, end: 20071025
  7. RITONAVIR [Concomitant]
     Indication: HIV INFECTION
     Dates: start: 20071025
  8. RITONAVIR [Concomitant]
     Dates: start: 20050118, end: 20061116
  9. EFAVIRENZ [Concomitant]
     Indication: HIV INFECTION
     Dates: start: 20061116, end: 20070915
  10. ZIDOVUDINE [Concomitant]
     Indication: HIV INFECTION
     Dates: start: 20070915, end: 20071025

REACTIONS (1)
  - OSTEONECROSIS [None]
